FAERS Safety Report 17459313 (Version 1)
Quarter: 2020Q1

REPORT INFORMATION
  Report Type: Spontaneous
  Country: US (occurrence: US)
  Receive Date: 20200225
  Receipt Date: 20200225
  Transmission Date: 20200409
  Serious: No
  Sender: FDA-Public Use
  Company Number: US-ROCHE-2529075

PATIENT
  Age: 13 Year
  Sex: Male
  Weight: 90.8 kg

DRUGS (1)
  1. XOFLUZA [Suspect]
     Active Substance: BALOXAVIR MARBOXIL
     Indication: INFLUENZA
     Dosage: ONE TIME DOSE
     Route: 048

REACTIONS (2)
  - Rash erythematous [Recovered/Resolved]
  - Swelling [Recovered/Resolved]
